FAERS Safety Report 19071033 (Version 1)
Quarter: 2021Q1

REPORT INFORMATION
  Report Type: Spontaneous
  Country: GB (occurrence: GB)
  Receive Date: 20210330
  Receipt Date: 20210330
  Transmission Date: 20210420
  Serious: Yes (Other)
  Sender: FDA-Public Use
  Company Number: GB-AUROBINDO-AUR-APL-2021-012177

PATIENT
  Age: 44 Year
  Sex: Female
  Weight: 63.5 kg

DRUGS (1)
  1. SERTRALINE [Suspect]
     Active Substance: SERTRALINE HYDROCHLORIDE
     Indication: ANXIETY
     Dosage: 5 MILLIGRAM
     Route: 048
     Dates: start: 20190905, end: 20190906

REACTIONS (7)
  - Adverse drug reaction [Recovered/Resolved]
  - Dyspnoea [Recovered/Resolved]
  - Panic attack [Not Recovered/Not Resolved]
  - Diarrhoea [Recovered/Resolved]
  - Medication error [Unknown]
  - Palpitations [Recovered/Resolved]
  - Muscle spasms [Recovered/Resolved]

NARRATIVE: CASE EVENT DATE: 20190905
